FAERS Safety Report 18498116 (Version 1)
Quarter: 2020Q4

REPORT INFORMATION
  Report Type: Spontaneous
  Country: CH (occurrence: CH)
  Receive Date: 20201112
  Receipt Date: 20201112
  Transmission Date: 20210114
  Serious: Yes (Hospitalization)
  Sender: FDA-Public Use
  Company Number: CH-JNJFOC-20201115233

PATIENT
  Age: 32 Year
  Sex: Female
  Weight: 93.75 kg

DRUGS (9)
  1. PALONOSETRON. [Concomitant]
     Active Substance: PALONOSETRON HYDROCHLORIDE
     Route: 042
     Dates: start: 20201020
  2. DEXAMETHASONE. [Concomitant]
     Active Substance: DEXAMETHASONE
     Route: 042
     Dates: start: 20201020
  3. PAZOPANIB [Concomitant]
     Active Substance: PAZOPANIB
     Dates: start: 202008, end: 202010
  4. PAZOPANIB [Concomitant]
     Active Substance: PAZOPANIB
     Indication: SARCOMA
     Route: 048
     Dates: start: 20200611, end: 202008
  5. TRABECTEDIN [Suspect]
     Active Substance: TRABECTEDIN
     Indication: SARCOMA METASTATIC
     Dosage: 3 MG IV ON 20-OCT-2020
     Route: 041
     Dates: start: 20201020, end: 20201020
  6. MORPHINE [Concomitant]
     Active Substance: MORPHINE
     Dosage: RESERVES OF 20 MG MAXIMUM , 6 TIMES A DAY
     Route: 048
     Dates: start: 20201022
  7. SODIUM PICOSULFATE [Concomitant]
     Active Substance: SODIUM PICOSULFATE
     Dosage: 10 DROPS
     Dates: start: 20201020
  8. MORPHINE [Concomitant]
     Active Substance: MORPHINE
     Dosage: RESERVES OF 9 MG MAXIMUM , 6 TIMES A DAY
     Route: 048
     Dates: start: 20201020
  9. PARACETAMOL SANDOZ [Suspect]
     Active Substance: ACETAMINOPHEN
     Indication: PAIN MANAGEMENT
     Dosage: AT 12PM AND 6PM ON 20-OCT-2020, AT MIDNIGHT AND 6AM ON 21-OCT-2020
     Route: 048
     Dates: start: 20201020, end: 20201021

REACTIONS (5)
  - Tachycardia [Unknown]
  - Hepatic enzyme increased [Recovering/Resolving]
  - Hypotension [Unknown]
  - Pyrexia [Unknown]
  - Hepatic failure [Recovering/Resolving]

NARRATIVE: CASE EVENT DATE: 20201022
